FAERS Safety Report 11204931 (Version 1)
Quarter: 2015Q2

REPORT INFORMATION
  Report Type: Spontaneous
  Country: US (occurrence: US)
  Receive Date: 20150622
  Receipt Date: 20150622
  Transmission Date: 20150821
  Serious: No
  Sender: FDA-Public Use
  Company Number: US-TEVA-571587ACC

PATIENT
  Age: 24 Year
  Sex: Female
  Weight: 74.46 kg

DRUGS (3)
  1. PLAN B ONE-STEP [Suspect]
     Active Substance: LEVONORGESTREL
     Indication: POST COITAL CONTRACEPTION
     Dosage: 1.5 MILLIGRAM DAILY;
     Route: 048
     Dates: start: 20150403, end: 20150403
  2. BYSTOLIC [Concomitant]
     Active Substance: NEBIVOLOL HYDROCHLORIDE
     Indication: MITRAL VALVE PROLAPSE
     Dosage: UNKNOWN FORM STRENGTH
     Route: 065
  3. KLONOPIN [Concomitant]
     Active Substance: CLONAZEPAM
     Indication: AUTONOMIC NERVOUS SYSTEM IMBALANCE
     Dosage: UNKNOWN FORM STRENGTH
     Route: 065

REACTIONS (2)
  - Menstruation irregular [Not Recovered/Not Resolved]
  - Menstruation irregular [Recovered/Resolved]

NARRATIVE: CASE EVENT DATE: 20150413
